FAERS Safety Report 26208632 (Version 1)
Quarter: 2025Q4

REPORT INFORMATION
  Report Type: Spontaneous
  Country: US (occurrence: US)
  Receive Date: 20251229
  Receipt Date: 20251229
  Transmission Date: 20260118
  Serious: No
  Sender: GALPHARM INTERNATIONAL
  Company Number: US-PERRIGO-25US006261

PATIENT
  Sex: Female

DRUGS (1)
  1. TIOCONAZOLE [Suspect]
     Active Substance: TIOCONAZOLE
     Indication: Fungal infection
     Dosage: 300 MG, SINGLE
     Route: 067
     Dates: start: 20250506, end: 20250506

REACTIONS (2)
  - Vulvovaginal pain [Not Recovered/Not Resolved]
  - Vulvovaginal burning sensation [Recovered/Resolved]

NARRATIVE: CASE EVENT DATE: 20250506
